FAERS Safety Report 4281035-9 (Version None)
Quarter: 2004Q1

REPORT INFORMATION
  Report Type: 
  Country: None (occurrence: None)
  Receive Date: 20040129
  Receipt Date: 20030530
  Transmission Date: 20041129
  Serious: Yes (Other)
  Sender: FDA-Public Use
  Company Number: US-BRISTOL-MYERS SQUIBB COMPANY-12289963

PATIENT
  Age: 29 Year
  Sex: Female

DRUGS (2)
  1. CISPLATIN [Suspect]
     Route: 061
  2. PRENATAL VITAMINS [Concomitant]

REACTIONS (1)
  - ACCIDENTAL EXPOSURE [None]
